FAERS Safety Report 13666773 (Version 1)
Quarter: 2017Q2

REPORT INFORMATION
  Report Type: Spontaneous
  Country: US (occurrence: US)
  Receive Date: 20170619
  Receipt Date: 20170619
  Transmission Date: 20170830
  Serious: No
  Sender: FDA-Public Use
  Company Number: US-ROCHE-1367599

PATIENT
  Sex: Female

DRUGS (11)
  1. VITAMIN A [Concomitant]
     Active Substance: VITAMIN A
  2. AUGMENTIN [Concomitant]
     Active Substance: AMOXICILLIN\CLAVULANATE POTASSIUM
  3. VITAMIN B12 [Concomitant]
     Active Substance: CYANOCOBALAMIN
  4. CRESTOR [Concomitant]
     Active Substance: ROSUVASTATIN CALCIUM
  5. AROMASIN [Concomitant]
     Active Substance: EXEMESTANE
  6. SYNTHROID [Concomitant]
     Active Substance: LEVOTHYROXINE SODIUM
  7. XELODA [Suspect]
     Active Substance: CAPECITABINE
     Route: 048
     Dates: start: 20140109
  8. FLAXSEED [Concomitant]
     Active Substance: FLAX SEED
  9. XELODA [Suspect]
     Active Substance: CAPECITABINE
     Route: 048
     Dates: start: 20130920
  10. XELODA [Suspect]
     Active Substance: CAPECITABINE
     Indication: BREAST CANCER
     Dosage: 7 DAYS ON AND 7 DAYS OFF.
     Route: 048
     Dates: start: 20140108
  11. GINKOBA [Concomitant]
     Active Substance: GINKGO

REACTIONS (5)
  - Influenza [Unknown]
  - Pain in extremity [Unknown]
  - Drug dose omission [Unknown]
  - Skin exfoliation [Not Recovered/Not Resolved]
  - Palmar-plantar erythrodysaesthesia syndrome [Unknown]
